FAERS Safety Report 5777138-X (Version None)
Quarter: 2008Q2

REPORT INFORMATION
  Report Type: 
  Country: None (occurrence: None)
  Receive Date: 20080618
  Receipt Date: 20080612
  Transmission Date: 20081010
  Serious: Yes (Life-Threatening)
  Sender: FDA-Public Use
  Company Number: JP-MERCK-0806USA02618

PATIENT

DRUGS (3)
  1. LOCHOL [Concomitant]
     Route: 048
     Dates: start: 20061201
  2. ASPIRIN [Concomitant]
     Route: 048
     Dates: start: 20061201
  3. HYZAAR [Suspect]
     Indication: HYPERTENSION
     Route: 048
     Dates: start: 20080112, end: 20080611

REACTIONS (1)
  - VENTRICULAR EXTRASYSTOLES [None]
